FAERS Safety Report 5326628-2 (Version None)
Quarter: 2007Q2

REPORT INFORMATION
  Report Type: 
  Country: None (occurrence: None)
  Receive Date: 20070516
  Receipt Date: 20070501
  Transmission Date: 20071010
  Serious: Yes (Hospitalization)
  Sender: FDA-Public Use
  Company Number: US-GENENTECH-241432

PATIENT

DRUGS (3)
  1. BEVACIZUMAB [Suspect]
     Indication: NON-SMALL CELL LUNG CANCER
     Dosage: 15 MG/KG, Q3W
     Route: 042
     Dates: start: 20040504
  2. TAXOL [Suspect]
     Indication: NON-SMALL CELL LUNG CANCER
     Dosage: 200 MG/M2, Q3W
     Route: 042
  3. CARBOPLATIN [Suspect]
     Indication: NON-SMALL CELL LUNG CANCER
     Dosage: UNK, Q3W
     Route: 042
     Dates: start: 20040504

REACTIONS (3)
  - ABDOMINAL PAIN [None]
  - FATIGUE [None]
  - HYPOKALAEMIA [None]
